FAERS Safety Report 8344529-2 (Version None)
Quarter: 2012Q2

REPORT INFORMATION
  Report Type: 
  Country: None (occurrence: None)
  Receive Date: 20120508
  Receipt Date: 20120427
  Transmission Date: 20120825
  Serious: Yes (Other)
  Sender: FDA-Public Use
  Company Number: US-JNJFOC-20120414304

PATIENT
  Sex: Female
  Weight: 56.7 kg

DRUGS (8)
  1. REMICADE [Suspect]
     Indication: COLITIS ULCERATIVE
     Route: 042
     Dates: end: 20120101
  2. FOSAMAX [Concomitant]
     Indication: OSTEOPOROSIS
     Route: 048
  3. REMICADE [Suspect]
     Route: 042
     Dates: start: 20120426
  4. CALCIUM [Concomitant]
     Indication: MEDICAL DIET
     Route: 048
  5. CHOLECALCIFEROL [Concomitant]
     Indication: MEDICAL DIET
     Route: 048
  6. ALL OTHER THERAPEUTICS [Concomitant]
     Indication: MEDICAL DIET
     Route: 048
  7. VESICARE [Concomitant]
     Indication: INCONTINENCE
     Route: 048
  8. SYNTHROID [Concomitant]
     Indication: THYROID DISORDER
     Route: 048

REACTIONS (7)
  - GASTROINTESTINAL INFECTION [None]
  - ANXIETY [None]
  - DRUG EFFECT DECREASED [None]
  - SLEEP APNOEA SYNDROME [None]
  - RESTLESS LEGS SYNDROME [None]
  - NERVOUSNESS [None]
  - SOMNOLENCE [None]
